FAERS Safety Report 5116280-3 (Version None)
Quarter: 2006Q3

REPORT INFORMATION
  Report Type: 
  Country: None (occurrence: None)
  Receive Date: 20060925
  Receipt Date: 20060914
  Transmission Date: 20061208
  Serious: Yes (Death)
  Sender: FDA-Public Use
  Company Number: B0438959A

PATIENT
  Age: 48 Year
  Sex: Female

DRUGS (3)
  1. PAXIL [Suspect]
  2. OXYCODONE HCL [Suspect]
  3. QUETIAPINE FUMARATE [Suspect]

REACTIONS (4)
  - ACCIDENT [None]
  - DRUG TOXICITY [None]
  - MULTI-ORGAN DISORDER [None]
  - PULMONARY OEDEMA [None]
